FAERS Safety Report 7594486-1 (Version None)
Quarter: 2011Q3

REPORT INFORMATION
  Report Type: 
  Country: None (occurrence: None)
  Receive Date: 20110707
  Receipt Date: 20110707
  Transmission Date: 20111222
  Serious: No
  Sender: FDA-Public Use
  Company Number: None

PATIENT
  Age: 46 Year
  Sex: Male
  Weight: 104.32 kg

DRUGS (2)
  1. VANCOMYCIN [Concomitant]
  2. GENTAMYCIN SULFATE [Suspect]
     Indication: ENDOCARDITIS
     Route: 041
     Dates: start: 20030401, end: 20030506

REACTIONS (7)
  - ACTIVITIES OF DAILY LIVING IMPAIRED [None]
  - TINNITUS [None]
  - FALL [None]
  - VISUAL ACUITY REDUCED [None]
  - DIZZINESS [None]
  - MEMORY IMPAIRMENT [None]
  - BALANCE DISORDER [None]
